FAERS Safety Report 7258319-5 (Version None)
Quarter: 2011Q1

REPORT INFORMATION
  Report Type: 
  Country: None (occurrence: None)
  Receive Date: 20110129
  Receipt Date: 20100809
  Transmission Date: 20110831
  Serious: No
  Sender: FDA-Public Use
  Company Number: US-ABBOTT-10P-163-0656187-00

PATIENT
  Sex: Male
  Weight: 74.91 kg

DRUGS (2)
  1. HUMIRA [Suspect]
     Route: 058
     Dates: start: 20090901
  2. HUMIRA [Suspect]
     Indication: CROHN'S DISEASE
     Route: 058
     Dates: start: 20090501, end: 20090901

REACTIONS (6)
  - INJECTION SITE PAIN [None]
  - FATIGUE [None]
  - ABDOMINAL PAIN [None]
  - INJECTION SITE SWELLING [None]
  - DEVICE MALFUNCTION [None]
  - DIARRHOEA [None]
